FAERS Safety Report 21974649 (Version 2)
Quarter: 2023Q1

REPORT INFORMATION
  Report Type: Spontaneous
  Country: US (occurrence: None)
  Receive Date: 20230209
  Receipt Date: 20230320
  Transmission Date: 20230418
  Serious: Yes (Other)
  Sender: FDA-Public Use
  Company Number: US-FARMAPROD-202212-2649

PATIENT
  Age: 59 Year
  Sex: Female

DRUGS (21)
  1. OXERVATE [Suspect]
     Active Substance: CENEGERMIN-BKBJ
     Indication: Neurotrophic keratopathy
     Route: 047
     Dates: start: 20221014, end: 202210
  2. OXERVATE [Suspect]
     Active Substance: CENEGERMIN-BKBJ
     Indication: Hypoaesthesia eye
     Route: 047
     Dates: start: 20221215
  3. XIIDRA [Concomitant]
     Active Substance: LIFITEGRAST
  4. NORVASC [Concomitant]
     Active Substance: AMLODIPINE BESYLATE
  5. LOTEMAX [Concomitant]
     Active Substance: LOTEPREDNOL ETABONATE
     Dosage: DROPS GEL
  6. CARBOXYMETHYLCELLULOSE SODIUM [Concomitant]
     Active Substance: CARBOXYMETHYLCELLULOSE SODIUM
  7. TOLTERODINE TARTRATE [Concomitant]
     Active Substance: TOLTERODINE TARTRATE
  8. TRIAMCINOLONE ACETONIDE [Concomitant]
     Active Substance: TRIAMCINOLONE ACETONIDE
  9. VENLAFAXINE HCL [Concomitant]
     Active Substance: VENLAFAXINE HYDROCHLORIDE
     Dosage: EXTENDED RELEASE 24 HOURS.
  10. AMMONIUM LACTATE [Concomitant]
     Active Substance: AMMONIUM LACTATE
  11. CLONAZEPAM [Concomitant]
     Active Substance: CLONAZEPAM
  12. LORATADINE [Concomitant]
     Active Substance: LORATADINE
  13. BREO ELLIPTA [Concomitant]
     Active Substance: FLUTICASONE FUROATE\VILANTEROL TRIFENATATE
     Dosage: 100-25MCG BLISTER WITH DEVICE
  14. FLAREX [Concomitant]
     Active Substance: FLUOROMETHOLONE ACETATE
  15. DOXYCYCLINE HYCLATE [Concomitant]
     Active Substance: DOXYCYCLINE HYCLATE
  16. TECFIDERA [Concomitant]
     Active Substance: DIMETHYL FUMARATE
     Dosage: DELAYED RELEASE
  17. AMANTADINE [Concomitant]
     Active Substance: AMANTADINE
  18. BACLOFEN [Concomitant]
     Active Substance: BACLOFEN
  19. GABAPENTIN [Concomitant]
     Active Substance: GABAPENTIN
  20. VITAMINS [Concomitant]
     Active Substance: VITAMINS
  21. TYRVAYA [Concomitant]
     Active Substance: VARENICLINE TARTRATE

REACTIONS (4)
  - Facial operation [Recovered/Resolved]
  - Therapy interrupted [Unknown]
  - Wrong technique in product usage process [Unknown]
  - Ocular hyperaemia [Unknown]

NARRATIVE: CASE EVENT DATE: 20221001
